FAERS Safety Report 9582049 (Version 2)
Quarter: 2013Q4

REPORT INFORMATION
  Report Type: Spontaneous
  Country: US (occurrence: US)
  Receive Date: 20131002
  Receipt Date: 20131106
  Transmission Date: 20140711
  Serious: No
  Sender: FDA-Public Use
  Company Number: US-AMGEN-USASP2013043314

PATIENT
  Age: 74 Year
  Sex: Male
  Weight: 76.64 kg

DRUGS (8)
  1. ENBREL [Suspect]
     Indication: PSORIATIC ARTHROPATHY
     Dosage: 50 MG, QWK
     Route: 058
     Dates: start: 201306
  2. ENBREL [Suspect]
     Indication: PSORIASIS
  3. ENALAPRIL [Suspect]
     Indication: HYPERTENSION
     Dosage: UNK
     Route: 048
     Dates: start: 201310
  4. BISOPROLOL FUMARATE [Concomitant]
     Dosage: 5 MG, UNK
  5. AMLODIPINE [Concomitant]
     Dosage: 2.5 MG, UNK
  6. LISINOPRIL [Concomitant]
     Dosage: 30 MG, UNK
  7. ALLOPURINOL [Concomitant]
     Dosage: 100 MG, UNK
  8. ASA [Concomitant]
     Dosage: 160 MG, UNK

REACTIONS (9)
  - Blood pressure increased [Not Recovered/Not Resolved]
  - Balance disorder [Not Recovered/Not Resolved]
  - Asthenia [Not Recovered/Not Resolved]
  - Dysstasia [Not Recovered/Not Resolved]
  - Hyperhidrosis [Not Recovered/Not Resolved]
  - Headache [Not Recovered/Not Resolved]
  - Night sweats [Not Recovered/Not Resolved]
  - Fatigue [Not Recovered/Not Resolved]
  - Psoriasis [Not Recovered/Not Resolved]
